FAERS Safety Report 10416749 (Version 1)
Quarter: 2014Q3

REPORT INFORMATION
  Report Type: Spontaneous
  Country: US (occurrence: US)
  Receive Date: 20140828
  Receipt Date: 20140828
  Transmission Date: 20150326
  Serious: Yes (Hospitalization, Other)
  Sender: FDA-Public Use
  Company Number: US-PFIZER INC-2014236052

PATIENT

DRUGS (1)
  1. SYNAREL [Suspect]
     Active Substance: NAFARELIN ACETATE
     Dosage: UNK

REACTIONS (1)
  - Cerebral haemorrhage [Unknown]
